FAERS Safety Report 25380971 (Version 4)
Quarter: 2025Q3

REPORT INFORMATION
  Report Type: Report from Study
  Country: BR (occurrence: BR)
  Receive Date: 20250530
  Receipt Date: 20250717
  Transmission Date: 20251021
  Serious: Yes (Hospitalization, Other)
  Sender: SANOFI AVENTIS
  Company Number: BR-SANOFI-02522794

PATIENT
  Age: 47 Year
  Sex: Female

DRUGS (18)
  1. DUPILUMAB [Suspect]
     Active Substance: DUPILUMAB
     Indication: Nasal polyps
     Dosage: 300 MG, QOW
     Route: 058
     Dates: start: 2022, end: 20250403
  2. DUPILUMAB [Suspect]
     Active Substance: DUPILUMAB
     Indication: Asthma
     Dates: start: 2025
  3. PREDNISONE [Suspect]
     Active Substance: PREDNISONE
     Indication: Rash pruritic
     Route: 048
  4. PREDNISONE [Suspect]
     Active Substance: PREDNISONE
     Indication: Rash
  5. PREDNISONE [Suspect]
     Active Substance: PREDNISONE
     Indication: Miliaria
  6. CORTICOSTEROID NOS [Suspect]
     Active Substance: CORTICOSTEROID NOS
     Route: 065
  7. OMEPRAZOLE [Concomitant]
     Active Substance: OMEPRAZOLE
     Indication: Gastrooesophageal reflux disease
     Route: 048
  8. OMEPRAZOLE [Concomitant]
     Active Substance: OMEPRAZOLE
     Indication: Reflux gastritis
  9. AZITHROMYCIN [Concomitant]
     Active Substance: AZITHROMYCIN
     Indication: Asthma
     Route: 048
     Dates: start: 2024
  10. SERETIDE [Concomitant]
     Active Substance: FLUTICASONE PROPIONATE\SALMETEROL XINAFOATE
     Indication: Asthma
     Dosage: 50 UG, BID
     Dates: start: 2010
  11. SPIRIVA [Concomitant]
     Active Substance: TIOTROPIUM BROMIDE MONOHYDRATE
     Indication: Asthma
  12. COBAMAMIDE [Concomitant]
     Active Substance: COBAMAMIDE
     Indication: Asthma
     Dosage: 1 DF, QM
     Route: 030
  13. CALCIUM CARBONATE [Concomitant]
     Active Substance: CALCIUM CARBONATE
     Indication: Asthma
     Dosage: 2 DF, QD
     Route: 048
  14. FERROUS SULFATE [Concomitant]
     Active Substance: FERROUS SULFATE
     Indication: Asthma
     Dosage: 2 DF, QD
  15. VITAMIN B12 [Concomitant]
     Active Substance: CYANOCOBALAMIN
     Indication: Asthma
     Dosage: 1 DF, QM
     Route: 030
  16. CITONEURIN [CYANOCOBALAMIN;PYRIDOXINE HYDROCHLORIDE;THIAMINE HYDROCHLO [Concomitant]
     Indication: Asthma
     Dosage: 1 DF, QM
     Route: 030
  17. FERRITIN [Concomitant]
     Active Substance: FERRITIN
  18. CALCIUM [Concomitant]
     Active Substance: CALCIUM

REACTIONS (38)
  - Respiratory tract infection [Unknown]
  - Hospitalisation [Unknown]
  - Asthma [Unknown]
  - Thrombosis [Unknown]
  - Anxiety [Not Recovered/Not Resolved]
  - Miliaria [Recovering/Resolving]
  - Rash pruritic [Unknown]
  - Malaise [Unknown]
  - Pelvic floor muscle weakness [Unknown]
  - Haematoma [Unknown]
  - Rhinorrhoea [Unknown]
  - Staphylococcal infection [Unknown]
  - Acne [Not Recovered/Not Resolved]
  - Obesity [Unknown]
  - Obstructive airways disorder [Unknown]
  - Allergic cough [Unknown]
  - Induration [Unknown]
  - Skin wound [Unknown]
  - Blister [Unknown]
  - Somnolence [Unknown]
  - Leiomyoma [Unknown]
  - Dyspnoea [Unknown]
  - Neck injury [Unknown]
  - Sensitive skin [Unknown]
  - Procedural haemorrhage [Unknown]
  - Skin weeping [Unknown]
  - Rebound effect [Unknown]
  - Swelling face [Unknown]
  - Skin burning sensation [Unknown]
  - Urticaria [Unknown]
  - Pruritus [Not Recovered/Not Resolved]
  - Oedema [Unknown]
  - Injection site bruising [Unknown]
  - Surgery [Recovered/Resolved]
  - Rash [Unknown]
  - Nasal polyps [Unknown]
  - Condition aggravated [Unknown]
  - Wrong technique in product usage process [Unknown]

NARRATIVE: CASE EVENT DATE: 20220101
